FAERS Safety Report 4701700-6 (Version None)
Quarter: 2005Q2

REPORT INFORMATION
  Report Type: 
  Country: None (occurrence: None)
  Receive Date: 20050628
  Receipt Date: 19970709
  Transmission Date: 20051028
  Serious: Yes (Other)
  Sender: FDA-Public Use
  Company Number: PHHO1997BR04108

PATIENT
  Age: 54 Year
  Sex: Female
  Weight: 78 kg

DRUGS (3)
  1. HYGROTON [Concomitant]
     Dosage: 12MG DAILY
  2. ESTRADERM [Concomitant]
  3. DIOVAN [Suspect]
     Dosage: 80 MG, QD
     Dates: start: 19970620

REACTIONS (2)
  - HEADACHE [None]
  - HYPERTENSIVE CRISIS [None]
